FAERS Safety Report 4368927-7 (Version None)
Quarter: 2004Q2

REPORT INFORMATION
  Report Type: 
  Country: None (occurrence: None)
  Receive Date: 20040527
  Receipt Date: 20040506
  Transmission Date: 20050107
  Serious: Yes (Hospitalization, Other)
  Sender: FDA-Public Use
  Company Number: USA040361485

PATIENT
  Age: 83 Year
  Sex: Female
  Weight: 38 kg

DRUGS (8)
  1. FORTEO [Suspect]
     Indication: OSTEOPOROSIS
     Dosage: 20 UG/1 DAY
     Dates: start: 20040101
  2. SYNTHROID [Concomitant]
  3. PLAQUENIL [Concomitant]
  4. METHOTREXATE [Concomitant]
  5. FOLIC ACID [Concomitant]
  6. PAXIL [Concomitant]
  7. LEVSIN(HYOSCYAMINE SULFATE) [Concomitant]
  8. PROTONIX [Concomitant]

REACTIONS (6)
  - ARTHRALGIA [None]
  - FALL [None]
  - MEDICATION ERROR [None]
  - PAIN IN EXTREMITY [None]
  - PELVIC FRACTURE [None]
  - PHARMACEUTICAL PRODUCT COMPLAINT [None]
